FAERS Safety Report 6127042-2 (Version None)
Quarter: 2009Q1

REPORT INFORMATION
  Report Type: 
  Country: None (occurrence: None)
  Receive Date: 20090318
  Receipt Date: 20090316
  Transmission Date: 20090719
  Serious: Yes (Hospitalization)
  Sender: FDA-Public Use
  Company Number: GXKR2009DE03169

PATIENT
  Age: 48 Year
  Sex: Male
  Weight: 72 kg

DRUGS (7)
  1. ACETYLSALICYLIC ACID (NGX) (ACETYLSALICYLIC ACID) TABLET, 300MG [Suspect]
     Indication: PERIPHERAL ARTERIAL OCCLUSIVE DISEASE
     Dosage: 300 MG, QD, ORAL
     Route: 048
     Dates: start: 20020101
  2. PLAVIX [Suspect]
     Indication: PERIPHERAL ARTERIAL OCCLUSIVE DISEASE
     Dosage: 75 MG, QD, ORAL
     Route: 048
  3. ZOSTEX (BRIVUDINE) 125MG [Suspect]
     Indication: HERPES ZOSTER
     Dosage: 125 MG, QD, ORAL
     Route: 048
     Dates: start: 20081113, end: 20081218
  4. INSULIN NOVOLET (INSULIN HUMAN) [Concomitant]
  5. FLUVASTATIN SODIUM [Concomitant]
  6. PANTOPRAZOLE SODIUM [Concomitant]
  7. RAMIPRIL [Concomitant]

REACTIONS (2)
  - GASTRITIS [None]
  - PANCREATITIS ACUTE [None]
